FAERS Safety Report 8356006-3 (Version None)
Quarter: 2012Q2

REPORT INFORMATION
  Report Type: 
  Country: None (occurrence: None)
  Receive Date: 20120511
  Receipt Date: 20120511
  Transmission Date: 20120825
  Serious: Yes (Other)
  Sender: FDA-Public Use
  Company Number: None

PATIENT
  Sex: Female
  Weight: 155.5838 kg

DRUGS (1)
  1. FERAHEME [Suspect]
     Indication: IRON DEFICIENCY ANAEMIA
     Dosage: 510 MG ONCE AND REPEATX1 IV
     Route: 042
     Dates: start: 20120405, end: 20120405

REACTIONS (4)
  - FLUSHING [None]
  - ABDOMINAL PAIN [None]
  - DYSPNOEA [None]
  - DIZZINESS [None]
